FAERS Safety Report 10463642 (Version 1)
Quarter: 2014Q3

REPORT INFORMATION
  Report Type: Spontaneous
  Country: US (occurrence: None)
  Receive Date: 20140918
  Receipt Date: 20140918
  Transmission Date: 20150326
  Serious: No
  Sender: FDA-Public Use
  Company Number: None

PATIENT
  Age: 23 Year
  Sex: Female
  Weight: 78.93 kg

DRUGS (1)
  1. QSYMIA [Suspect]
     Active Substance: PHENTERMINE HYDROCHLORIDE\TOPIRAMATE
     Indication: WEIGHT DECREASED
     Route: 048
     Dates: start: 20140829, end: 20140917

REACTIONS (4)
  - Middle insomnia [None]
  - Paraesthesia [None]
  - Dizziness [None]
  - Hypoaesthesia [None]

NARRATIVE: CASE EVENT DATE: 20140903
